FAERS Safety Report 24145700 (Version 1)
Quarter: 2024Q3

REPORT INFORMATION
  Report Type: Spontaneous
  Country: US (occurrence: US)
  Receive Date: 20240729
  Receipt Date: 20240729
  Transmission Date: 20241016
  Serious: Yes (Hospitalization, Other)
  Sender: APOTEX
  Company Number: US-APOTEX-2024AP008649

PATIENT
  Age: 18 Year
  Sex: Female

DRUGS (2)
  1. ACETAMINOPHEN [Suspect]
     Active Substance: ACETAMINOPHEN
     Indication: Product used for unknown indication
     Dosage: UNK
     Route: 065
  2. AMLODIPINE [Suspect]
     Active Substance: AMLODIPINE BESYLATE
     Indication: Product used for unknown indication
     Dosage: 900 MILLIGRAM
     Route: 065

REACTIONS (8)
  - Cardiogenic shock [Recovering/Resolving]
  - Non-cardiogenic pulmonary oedema [Recovering/Resolving]
  - Vasoplegia syndrome [Recovering/Resolving]
  - Condition aggravated [Recovering/Resolving]
  - Hypoxia [Recovering/Resolving]
  - Haemodynamic instability [Recovering/Resolving]
  - Overdose [Recovering/Resolving]
  - Harlequin syndrome [Recovering/Resolving]
